FAERS Safety Report 4664499-8 (Version None)
Quarter: 2005Q2

REPORT INFORMATION
  Report Type: 
  Country: None (occurrence: None)
  Receive Date: 20050518
  Receipt Date: 20050512
  Transmission Date: 20051028
  Serious: Yes (Death)
  Sender: FDA-Public Use
  Company Number: 200514259GDDC

PATIENT
  Sex: 0

DRUGS (1)
  1. LANTUS [Suspect]

REACTIONS (1)
  - DEATH [None]
